FAERS Safety Report 13235789 (Version 2)
Quarter: 2019Q1

REPORT INFORMATION
  Report Type: Spontaneous
  Country: CH (occurrence: CH)
  Receive Date: 20170215
  Receipt Date: 20190205
  Transmission Date: 20190417
  Serious: No
  Sender: FDA-Public Use
  Company Number: CH-UCBSA-2017005400

PATIENT
  Age: 48 Year
  Sex: Male

DRUGS (3)
  1. LAMOTRIGINE. [Concomitant]
     Active Substance: LAMOTRIGINE
     Indication: EPILEPSY
     Dosage: 175 MG/DAY
  2. KEPPRA [Suspect]
     Active Substance: LEVETIRACETAM
     Indication: EPILEPSY
     Dosage: 1000 MG/DAY
  3. KEPPRA [Suspect]
     Active Substance: LEVETIRACETAM
     Dosage: 750 MG, ONCE DAILY (QD)
     Route: 002

REACTIONS (1)
  - Depressed mood [Recovered/Resolved]
